FAERS Safety Report 24444286 (Version 2)
Quarter: 2024Q4

REPORT INFORMATION
  Report Type: Report from Study
  Country: US (occurrence: US)
  Receive Date: 20241016
  Receipt Date: 20241017
  Transmission Date: 20250115
  Serious: No
  Sender: ROCHE
  Company Number: US-ROCHE-2803694

PATIENT
  Age: 53 Year
  Sex: Female

DRUGS (3)
  1. RITUXAN [Suspect]
     Active Substance: RITUXIMAB
     Indication: Systemic lupus erythematosus
     Dosage: ON DAY 1 AND DAY 14 EVERY 4 MONTH
     Route: 065
  2. RITUXAN [Suspect]
     Active Substance: RITUXIMAB
     Indication: Iridocyclitis
  3. CODEINE [Concomitant]
     Active Substance: CODEINE
     Indication: Hypersensitivity

REACTIONS (2)
  - Off label use [Unknown]
  - No adverse event [Unknown]
